FAERS Safety Report 17828266 (Version 3)
Quarter: 2020Q2

REPORT INFORMATION
  Report Type: Spontaneous
  Country: CN (occurrence: CN)
  Receive Date: 20200527
  Receipt Date: 20200609
  Transmission Date: 20200714
  Serious: Yes (Death, Other)
  Sender: FDA-Public Use
  Company Number: CN-ROCHE-2608201

PATIENT
  Age: 68 Year
  Sex: Male

DRUGS (3)
  1. PREDNISONE. [Concomitant]
     Active Substance: PREDNISONE
     Indication: B-CELL LYMPHOMA
     Dosage: 10 MG PER DAY
     Route: 048
     Dates: start: 20191210
  2. MABTHERA [Suspect]
     Active Substance: RITUXIMAB
     Indication: B-CELL LYMPHOMA
     Dosage: D1, 2 COURSES OF R2 CHEMOTHERAPY
     Route: 065
     Dates: start: 20191210
  3. LENALIDOMIDE [Concomitant]
     Active Substance: LENALIDOMIDE
     Indication: B-CELL LYMPHOMA
     Dosage: D1-28, 2 COURSES OF R2 CHEMOTHERAPY
     Route: 065
     Dates: start: 20191210

REACTIONS (10)
  - Acute left ventricular failure [Recovering/Resolving]
  - Intentional product use issue [Unknown]
  - Sinus tachycardia [Unknown]
  - Right atrial enlargement [Unknown]
  - Pulmonary arterial hypertension [Unknown]
  - Obliterative bronchiolitis [Fatal]
  - Interstitial lung disease [Unknown]
  - Aortic arteriosclerosis [Unknown]
  - Off label use [Unknown]
  - Atrial fibrillation [Unknown]

NARRATIVE: CASE EVENT DATE: 20200221
